FAERS Safety Report 22159783 (Version 2)
Quarter: 2023Q2

REPORT INFORMATION
  Report Type: Spontaneous
  Country: FR (occurrence: FR)
  Receive Date: 20230331
  Receipt Date: 20230503
  Transmission Date: 20230721
  Serious: Yes (Other)
  Sender: FDA-Public Use
  Company Number: None

PATIENT
  Age: 30 Year
  Sex: Male

DRUGS (4)
  1. INFLIXIMAB [Suspect]
     Active Substance: INFLIXIMAB
     Indication: Behcet^s syndrome
     Dosage: INFLIXIMAB (MAMMAL/HAMSTER/CHO CELLS) S0
     Route: 042
     Dates: start: 20211105
  2. INFLIXIMAB [Suspect]
     Active Substance: INFLIXIMAB
     Dosage: INFLIXIMAB (MAMMAL/HAMSTER/CHO CELLS) S2
     Route: 042
  3. INFLIXIMAB [Suspect]
     Active Substance: INFLIXIMAB
     Dosage: INFLIXIMAB (MAMMAL/HAMSTER/CHO CELLS) S6
     Route: 042
  4. INFLIXIMAB [Suspect]
     Active Substance: INFLIXIMAB
     Dosage: INFLIXIMAB (MAMMAL/HAMSTER/CHO CELLS) THEN EVERY S4
     Route: 042

REACTIONS (2)
  - Eosinophilia [Not Recovered/Not Resolved]
  - Product use in unapproved indication [Unknown]

NARRATIVE: CASE EVENT DATE: 20220930
